FAERS Safety Report 25176800 (Version 1)
Quarter: 2025Q2

REPORT INFORMATION
  Report Type: Spontaneous
  Country: DE (occurrence: DE)
  Receive Date: 20250409
  Receipt Date: 20250409
  Transmission Date: 20250716
  Serious: Yes (Congenital Anomaly)
  Sender: TEVA
  Company Number: DE-EMB-M202309488-1

PATIENT
  Sex: Female
  Weight: 2.95 kg

DRUGS (13)
  1. METOPROLOL [Suspect]
     Active Substance: METOPROLOL
     Indication: Hypertension
     Route: 064
     Dates: start: 202309, end: 202406
  2. FOLIC ACID [Concomitant]
     Active Substance: FOLIC ACID
     Indication: Prophylaxis of neural tube defect
     Dosage: + PREC.
     Route: 064
     Dates: start: 202309, end: 202311
  3. MESALAMINE [Suspect]
     Active Substance: MESALAMINE
     Indication: Colitis ulcerative
     Route: 064
     Dates: start: 202309, end: 202406
  4. VITAMIN D3 [Concomitant]
     Active Substance: CHOLECALCIFEROL
     Indication: Vitamin D deficiency
     Route: 064
     Dates: start: 202309, end: 202311
  5. LEVOTHYROXINE SODIUM [Concomitant]
     Active Substance: LEVOTHYROXINE SODIUM
     Indication: Hypothyroidism
     Route: 064
     Dates: start: 202309, end: 202406
  6. Salofalk [Concomitant]
     Indication: Colitis ulcerative
     Route: 064
     Dates: start: 202406, end: 202406
  7. Salofalk [Concomitant]
     Indication: Colitis ulcerative
     Route: 064
     Dates: start: 202404, end: 202405
  8. Salofalk [Concomitant]
     Indication: Colitis ulcerative
     Dosage: 1000
     Route: 064
     Dates: start: 202402, end: 202402
  9. Salofalk [Concomitant]
     Indication: Colitis ulcerative
     Route: 064
     Dates: start: 202402, end: 202402
  10. Salofalk [Concomitant]
     Indication: Colitis ulcerative
     Route: 064
     Dates: start: 202406, end: 202406
  11. NIFEDIPINE [Suspect]
     Active Substance: NIFEDIPINE
     Indication: Hypertension
     Route: 064
     Dates: start: 202404, end: 202404
  12. NIFEDIPINE [Suspect]
     Active Substance: NIFEDIPINE
     Indication: Hypertension
     Route: 064
     Dates: start: 202309, end: 202403
  13. NIFEDIPINE [Suspect]
     Active Substance: NIFEDIPINE
     Indication: Hypertension
     Dosage: 30-0-30 MG/D
     Route: 064
     Dates: start: 202405, end: 202406

REACTIONS (2)
  - Congenital anisocoria [Unknown]
  - Foetal exposure during pregnancy [Unknown]
